FAERS Safety Report 4270618-8 (Version None)
Quarter: 2004Q1

REPORT INFORMATION
  Report Type: 
  Country: None (occurrence: None)
  Receive Date: 20040113
  Receipt Date: 20031230
  Transmission Date: 20041129
  Serious: Yes (Life-Threatening, Hospitalization)
  Sender: FDA-Public Use
  Company Number: A-CH2003-04129

PATIENT
  Age: 73 Year
  Sex: Female

DRUGS (10)
  1. TRACLEER [Suspect]
     Indication: PULMONARY HYPERTENSION
     Dosage: 125 MG, BID, ORAL; 62.5 MG, BID, ORAL
     Route: 048
     Dates: start: 20030515, end: 20030601
  2. TRACLEER [Suspect]
     Indication: PULMONARY HYPERTENSION
     Dosage: 125 MG, BID, ORAL; 62.5 MG, BID, ORAL
     Route: 048
     Dates: start: 20030601, end: 20031201
  3. LEVOTHYROXINE SODIUM [Concomitant]
  4. OMEPRAZOLE [Concomitant]
  5. COLCHIMAX (DICYCLOVERINE HYDROCHLORIDE, COLCHICINE) [Concomitant]
  6. EFFEXOR [Concomitant]
  7. LEXOMIL (BROMAZEPAM) [Concomitant]
  8. KLIPAL (CODEINE PHOSPHATE HEMIHYDRATE, PARACETAMOL) [Concomitant]
  9. TRANSIPEG (MACROGOL) [Concomitant]
  10. TROLOVOL (PENICILLAMINE) [Concomitant]

REACTIONS (9)
  - ACUTE PULMONARY OEDEMA [None]
  - ANAEMIA [None]
  - APNOEA [None]
  - DEPRESSED LEVEL OF CONSCIOUSNESS [None]
  - DILATATION VENTRICULAR [None]
  - DYSPNOEA [None]
  - HYPERTENSION [None]
  - PERICARDIAL EFFUSION [None]
  - VENTRICULAR HYPERTROPHY [None]
